FAERS Safety Report 25466388 (Version 1)
Quarter: 2025Q2

REPORT INFORMATION
  Report Type: Spontaneous
  Country: US (occurrence: US)
  Receive Date: 20250623
  Receipt Date: 20250623
  Transmission Date: 20250716
  Serious: No
  Sender: GLAXOSMITHKLINE
  Company Number: US-GSK-US2025AMR077741

PATIENT
  Age: 59 Year
  Sex: Female

DRUGS (4)
  1. ZEJULA [Suspect]
     Active Substance: NIRAPARIB
     Indication: Ovarian cancer
     Dosage: 200 MG, QD
     Dates: start: 202502
  2. ZEJULA [Suspect]
     Active Substance: NIRAPARIB
     Indication: Metastases to liver
  3. ZEJULA [Suspect]
     Active Substance: NIRAPARIB
     Indication: Cholangiocarcinoma
  4. ZEJULA [Suspect]
     Active Substance: NIRAPARIB
     Indication: Neoplasm malignant

REACTIONS (1)
  - Product use in unapproved indication [Unknown]

NARRATIVE: CASE EVENT DATE: 20250201
